FAERS Safety Report 5338762-1 (Version None)
Quarter: 2007Q2

REPORT INFORMATION
  Report Type: 
  Country: None (occurrence: None)
  Receive Date: 20070322
  Receipt Date: 20060421
  Transmission Date: 20071010
  Serious: Yes (Life-Threatening, Other)
  Sender: FDA-Public Use
  Company Number: 200610425BCC

PATIENT
  Age: 62 Year
  Sex: Male
  Weight: 80.7403 kg

DRUGS (8)
  1. ALEVE (CAPLET) [Suspect]
     Indication: MUSCULOSKELETAL PAIN
     Dosage: 440 MG, ONCE, ORAL
     Route: 048
     Dates: start: 20060121
  2. ZOCOR [Concomitant]
  3. SERTRALINE HCL [Concomitant]
  4. ASPIRIN [Concomitant]
  5. BACLOFEN [Concomitant]
  6. RANITIDINE [Concomitant]
  7. HYDROCODONE BITARTRATE [Concomitant]
  8. VICODIN [Concomitant]

REACTIONS (18)
  - ANAPHYLACTIC SHOCK [None]
  - BLOOD PRESSURE DECREASED [None]
  - DISORIENTATION [None]
  - DROOLING [None]
  - DYSARTHRIA [None]
  - DYSPNOEA [None]
  - DYSSTASIA [None]
  - FEELING HOT [None]
  - HYPERSENSITIVITY [None]
  - LOSS OF CONSCIOUSNESS [None]
  - NAUSEA [None]
  - OEDEMA PERIPHERAL [None]
  - PAIN [None]
  - PALLOR [None]
  - PRURITUS GENERALISED [None]
  - PULSE ABSENT [None]
  - RASH GENERALISED [None]
  - RESTLESSNESS [None]
